FAERS Safety Report 4988010-7 (Version None)
Quarter: 2006Q2

REPORT INFORMATION
  Report Type: 
  Country: None (occurrence: None)
  Receive Date: 20060426
  Receipt Date: 20060413
  Transmission Date: 20061013
  Serious: Yes (Other)
  Sender: FDA-Public Use
  Company Number: MEDI-0004417

PATIENT
  Sex: Female

DRUGS (5)
  1. SYNAGIS [Suspect]
     Indication: ANTIVIRAL PROPHYLAXIS
     Dosage: 89 MG, 1 IN 30 D, INTRAMUSCULAR
     Route: 030
     Dates: start: 20031216, end: 20040312
  2. RETINOL (RETINOL) [Concomitant]
  3. CALCIFEROL (ERGOCALCIFEROL) [Concomitant]
  4. FERRIC PYROPHOSPHATE (FERRIC PYROPHOSPHATE) [Concomitant]
  5. ALFACALCIDOL (ALFACALCIDOL) [Concomitant]

REACTIONS (1)
  - PERIVENTRICULAR LEUKOMALACIA [None]
